FAERS Safety Report 18694304 (Version 1)
Quarter: 2021Q1

REPORT INFORMATION
  Report Type: Spontaneous
  Country: US (occurrence: US)
  Receive Date: 20210103
  Receipt Date: 20210103
  Transmission Date: 20210419
  Serious: No
  Sender: FDA-Public Use
  Company Number: None

PATIENT
  Age: 50 Year
  Sex: Female
  Weight: 72 kg

DRUGS (1)
  1. AIMOVIG [Suspect]
     Active Substance: ERENUMAB-AOOE
     Indication: MIGRAINE
     Dates: start: 20200601, end: 20201001

REACTIONS (5)
  - Flatulence [None]
  - Gastrointestinal motility disorder [None]
  - Drug ineffective [None]
  - Abdominal pain [None]
  - Abdominal distension [None]

NARRATIVE: CASE EVENT DATE: 20200911
